FAERS Safety Report 6546015-9 (Version None)
Quarter: 2010Q1

REPORT INFORMATION
  Report Type: 
  Country: None (occurrence: None)
  Receive Date: 20100121
  Receipt Date: 20100121
  Transmission Date: 20100710
  Serious: Yes (Other)
  Sender: FDA-Public Use
  Company Number: None

PATIENT
  Age: 29 Year
  Sex: Male
  Weight: 70.3075 kg

DRUGS (1)
  1. DEXLANSOPRAZOLE 60MG TAKEDA [Suspect]
     Indication: GASTRITIS
     Dosage: 60MG 1 DAILY PO
     Route: 048
     Dates: start: 20091130, end: 20100117

REACTIONS (1)
  - DRY MOUTH [None]
